FAERS Safety Report 10236354 (Version 1)
Quarter: 2014Q2

REPORT INFORMATION
  Report Type: Spontaneous
  Country: US (occurrence: US)
  Receive Date: 20140613
  Receipt Date: 20140613
  Transmission Date: 20141212
  Serious: No
  Sender: FDA-Public Use
  Company Number: US-GLAXOSMITHKLINE-A1063583A

PATIENT
  Age: 47 Year
  Sex: Male

DRUGS (2)
  1. TREXIMET [Suspect]
     Indication: MIGRAINE
     Route: 065
     Dates: start: 20100721
  2. VESICARE [Suspect]
     Indication: PRODUCT USED FOR UNKNOWN INDICATION
     Dosage: 5MG UNKNOWN
     Route: 065

REACTIONS (3)
  - Influenza [Unknown]
  - Nasopharyngitis [Unknown]
  - Malaise [Unknown]
